FAERS Safety Report 7825416-2 (Version None)
Quarter: 2011Q4

REPORT INFORMATION
  Report Type: 
  Country: None (occurrence: None)
  Receive Date: 20111017
  Receipt Date: 20110927
  Transmission Date: 20120403
  Serious: Yes (Hospitalization)
  Sender: FDA-Public Use
  Company Number: 2011PROUSA00680

PATIENT
  Age: 79 Year
  Sex: Male

DRUGS (3)
  1. PROVENGE [Suspect]
     Indication: PROSTATE CANCER METASTATIC
     Dosage: 250ML, SINGLE, INTRAVENOUS
     Route: 042
     Dates: start: 20110805, end: 20110805
  2. PROVENGE [Suspect]
     Dosage: PROVENGE REGIMEN # 3 250ML, SINGLE, INTRAVENOUS
     Route: 042
  3. PROVENGE [Suspect]
     Dosage: PROVENGE REGIMEN # 2 250ML, SINGLE, INTRAVENOUS
     Route: 042
     Dates: start: 20110901, end: 20110901

REACTIONS (1)
  - INFECTION [None]
